FAERS Safety Report 16939174 (Version 1)
Quarter: 2019Q4

REPORT INFORMATION
  Report Type: Spontaneous
  Country: US (occurrence: US)
  Receive Date: 20191021
  Receipt Date: 20191021
  Transmission Date: 20200122
  Serious: No
  Sender: FDA-Public Use
  Company Number: US-ASTRAZENECA-2019SF45344

PATIENT
  Sex: Male

DRUGS (1)
  1. DALIRESP [Suspect]
     Active Substance: ROFLUMILAST
     Dosage: 500.0MG UNKNOWN
     Route: 048

REACTIONS (3)
  - Rash [Recovering/Resolving]
  - Nausea [Recovered/Resolved]
  - Feeling abnormal [Unknown]
